FAERS Safety Report 5018795-5 (Version None)
Quarter: 2006Q2

REPORT INFORMATION
  Report Type: 
  Country: None (occurrence: None)
  Receive Date: 20060526
  Receipt Date: 20060518
  Transmission Date: 20061013
  Serious: Yes (Hospitalization)
  Sender: FDA-Public Use
  Company Number: 200612116GDS

PATIENT
  Age: 86 Year
  Sex: Female

DRUGS (7)
  1. AVELOX [Suspect]
     Indication: UPPER RESPIRATORY TRACT INFECTION
     Dosage: 400 MG, QD, ORAL
     Route: 048
     Dates: start: 20060424, end: 20060428
  2. KANRENOL [Concomitant]
  3. SELEPARINA [Concomitant]
  4. LASIX [Concomitant]
  5. LOPRESSOR [Concomitant]
  6. COVERSYL [Concomitant]
  7. MEPRAL [Concomitant]

REACTIONS (1)
  - ENTERITIS [None]
